FAERS Safety Report 6166707-3 (Version None)
Quarter: 2009Q2

REPORT INFORMATION
  Report Type: 
  Country: None (occurrence: None)
  Receive Date: 20090424
  Receipt Date: 20090414
  Transmission Date: 20091009
  Serious: Yes (Hospitalization)
  Sender: FDA-Public Use
  Company Number: US-PFIZER INC-2009197279

PATIENT
  Sex: Male
  Weight: 89.9 kg

DRUGS (1)
  1. SUTENT [Suspect]
     Indication: METASTATIC MALIGNANT MELANOMA
     Dosage: 37.5 MG, 1X/DAY
     Route: 048
     Dates: start: 20090316

REACTIONS (2)
  - HAEMATEMESIS [None]
  - SINUSITIS [None]
